FAERS Safety Report 6402570-0 (Version None)
Quarter: 2009Q4

REPORT INFORMATION
  Report Type: 
  Country: None (occurrence: None)
  Receive Date: 20091015
  Receipt Date: 20091012
  Transmission Date: 20100525
  Serious: Yes (Hospitalization)
  Sender: FDA-Public Use
  Company Number: US-MERCK-0910USA01390

PATIENT
  Age: 76 Year
  Sex: Female

DRUGS (3)
  1. FOSAMAX [Suspect]
     Indication: OSTEOPOROSIS
     Route: 048
  2. WARFARIN [Concomitant]
     Route: 065
  3. FOSAMAX [Suspect]
     Route: 048

REACTIONS (2)
  - CARDIAC OPERATION [None]
  - CARDIAC VALVE DISEASE [None]
